FAERS Safety Report 24590375 (Version 1)
Quarter: 2024Q4

REPORT INFORMATION
  Report Type: Other
  Country: IT (occurrence: IT)
  Receive Date: 20241107
  Receipt Date: 20241107
  Transmission Date: 20250114
  Serious: Yes (Disabling)
  Sender: BLUEPRINT MEDICINES
  Company Number: IT-Blueprint Medicines Corporation-SO-IT-2024-002234

PATIENT
  Age: 73 Year
  Sex: Female

DRUGS (5)
  1. AVAPRITINIB [Suspect]
     Active Substance: AVAPRITINIB
     Indication: Gastrointestinal stromal tumour
     Dosage: 100MG PER DAY AND 200MG PER DAY ON ALTERNATE DAYS
     Route: 065
     Dates: start: 20240223, end: 20240827
  2. AVAPRITINIB [Suspect]
     Active Substance: AVAPRITINIB
     Dosage: 100MG PER DAY AND 200MG PER DAY ON ALTERNATE DAYS
     Route: 048
     Dates: start: 20240223, end: 20240827
  3. PANTOPRAZOLE [Concomitant]
     Active Substance: PANTOPRAZOLE
     Indication: Chronic gastritis
     Route: 048
     Dates: start: 202402
  4. LEVOTHYROXINE [Concomitant]
     Active Substance: LEVOTHYROXINE
     Indication: Hypothyroidism
     Route: 048
     Dates: start: 201001
  5. FUROSEMIDE [Concomitant]
     Active Substance: FUROSEMIDE
     Indication: Ascites
     Route: 048
     Dates: start: 20240223

REACTIONS (6)
  - Vertigo [Not Recovered/Not Resolved]
  - Tremor [Not Recovered/Not Resolved]
  - Periorbital oedema [Recovered/Resolved]
  - Somnolence [Recovered/Resolved]
  - Nausea [Recovered/Resolved]
  - Hyperbilirubinaemia [Recovered/Resolved]

NARRATIVE: CASE EVENT DATE: 20240824
